FAERS Safety Report 21521663 (Version 1)
Quarter: 2022Q4

REPORT INFORMATION
  Report Type: Spontaneous
  Country: HU (occurrence: HU)
  Receive Date: 20221028
  Receipt Date: 20221028
  Transmission Date: 20230113
  Serious: Yes (Death, Hospitalization, Other)
  Sender: FDA-Public Use
  Company Number: HU-SA-SAC20221027001816

PATIENT
  Age: 73 Year
  Sex: Female

DRUGS (1)
  1. FABRAZYME [Suspect]
     Active Substance: AGALSIDASE BETA
     Indication: Fabry^s disease
     Dosage: 1 MG/KG, QOW (1MG/BODYWEIGHT BIWEEKLY)
     Route: 042
     Dates: start: 20180808, end: 20220921

REACTIONS (9)
  - COVID-19 [Fatal]
  - Condition aggravated [Fatal]
  - Somnolence [Fatal]
  - Speech disorder [Fatal]
  - Hemiparesis [Fatal]
  - Blood glucose increased [Fatal]
  - Cerebral ischaemia [Fatal]
  - Acute kidney injury [Fatal]
  - Vascular encephalopathy [Fatal]

NARRATIVE: CASE EVENT DATE: 20221001
